FAERS Safety Report 7858643-9 (Version None)
Quarter: 2011Q4

REPORT INFORMATION
  Report Type: 
  Country: None (occurrence: None)
  Receive Date: 20111027
  Receipt Date: 20110124
  Transmission Date: 20120403
  Serious: Yes (Hospitalization, Other)
  Sender: FDA-Public Use
  Company Number: JP-BAYER-2011-004156

PATIENT
  Sex: Female
  Weight: 53 kg

DRUGS (7)
  1. RESTAMIN [Concomitant]
     Indication: GENERALISED ERYTHEMA
     Dosage: UNK
     Route: 061
     Dates: start: 20101230
  2. NEXAVAR [Suspect]
     Indication: HEPATIC NEOPLASM MALIGNANT
     Dosage: DAILY DOSE 400 MG
     Route: 048
     Dates: start: 20101220, end: 20101227
  3. CELECOXIB [Concomitant]
     Indication: BACK PAIN
     Dosage: 200 MG, UNK
     Route: 048
     Dates: start: 20101220, end: 20101227
  4. ZYRTEC [Concomitant]
     Indication: GENERALISED ERYTHEMA
     Dosage: UNK
     Route: 048
     Dates: start: 20101230
  5. PYDOXAL [Concomitant]
     Indication: PROPHYLAXIS
     Dosage: 30 MG, UNK
     Route: 048
     Dates: start: 20101220, end: 20101227
  6. DIACORT [Concomitant]
     Indication: GENERALISED ERYTHEMA
     Dosage: UNK
     Route: 061
     Dates: start: 20101230
  7. LIDOMEX [Concomitant]
     Indication: GENERALISED ERYTHEMA
     Dosage: UNK
     Route: 061
     Dates: start: 20101229

REACTIONS (2)
  - LIVER DISORDER [None]
  - ERYTHEMA MULTIFORME [None]
